FAERS Safety Report 15451366 (Version 3)
Quarter: 2018Q4

REPORT INFORMATION
  Report Type: Spontaneous
  Country: ES (occurrence: ES)
  Receive Date: 20181001
  Receipt Date: 20181017
  Transmission Date: 20190204
  Serious: Yes (Other)
  Sender: FDA-Public Use
  Company Number: ES-009507513-1809ESP012929

PATIENT
  Age: 74 Year
  Sex: Male

DRUGS (3)
  1. CITALOPRAM [Concomitant]
     Active Substance: CITALOPRAM HYDROBROMIDE
     Indication: ANXIETY
     Dosage: 10 MG IN THE MORNING
  2. JANUMET [Suspect]
     Active Substance: METFORMIN HYDROCHLORIDE\SITAGLIPTIN PHOSPHATE
     Indication: DIABETES MELLITUS
     Dosage: 2 TABLETS PER DAY, ONE IN THE MORNING AND ONE IN THE EVENING
     Route: 048
     Dates: start: 20180922
  3. MIRTAZAPINE. [Concomitant]
     Active Substance: MIRTAZAPINE
     Indication: ANXIETY
     Dosage: 15 MG ALTER IN THE EVENING

REACTIONS (3)
  - Feeling abnormal [Unknown]
  - Diabetes mellitus inadequate control [Unknown]
  - Insomnia [Unknown]

NARRATIVE: CASE EVENT DATE: 201809
